FAERS Safety Report 17048901 (Version 3)
Quarter: 2020Q1

REPORT INFORMATION
  Report Type: Spontaneous
  Country: US (occurrence: US)
  Receive Date: 20191119
  Receipt Date: 20200113
  Transmission Date: 20200409
  Serious: Yes (Hospitalization, Other)
  Sender: FDA-Public Use
  Company Number: US-SA-2019SA314155

PATIENT
  Age: 53 Year
  Sex: Female

DRUGS (32)
  1. ACYCLOVIR [ACICLOVIR SODIUM] [Concomitant]
     Active Substance: ACYCLOVIR
     Dosage: 1 TABLET, BID,FOR 90 DAYS
     Route: 048
  2. AMITRIPTYLINE [Concomitant]
     Active Substance: AMITRIPTYLINE
     Dosage: ONE TABLET, QD
     Route: 048
  3. AMOXICILLIN. [Concomitant]
     Active Substance: AMOXICILLIN
  4. BUPROPION HCL [Concomitant]
     Active Substance: BUPROPION HYDROCHLORIDE
     Dosage: 1 TABLET, QD
     Route: 048
  5. FAMOTIDINE. [Concomitant]
     Active Substance: FAMOTIDINE
  6. TOBRAMYCIN AND DEXAMETHASONE [Concomitant]
     Active Substance: DEXAMETHASONE\TOBRAMYCIN
  7. KETOROLAC [Concomitant]
     Active Substance: KETOROLAC TROMETHAMINE
  8. LEVOFLOXACIN. [Concomitant]
     Active Substance: LEVOFLOXACIN
  9. RANITIDINE. [Concomitant]
     Active Substance: RANITIDINE
     Dosage: 1 TABLET, QD, IN THE MORNING
     Route: 048
  10. TRAMADOL. [Concomitant]
     Active Substance: TRAMADOL
  11. LEMTRADA [Suspect]
     Active Substance: ALEMTUZUMAB
     Indication: MULTIPLE SCLEROSIS
     Dosage: UNK, UNK
     Route: 041
     Dates: start: 201707
  12. ZOLPIDEM [Concomitant]
     Active Substance: ZOLPIDEM TARTRATE
     Dosage: 1 TABLET, HS
     Route: 048
  13. CEPHALEXIN [CEFALEXIN] [Concomitant]
     Active Substance: CEPHALEXIN
  14. FLUTICASONE PROPIONATE. [Concomitant]
     Active Substance: FLUTICASONE PROPIONATE
  15. ALPRAZOLAM. [Concomitant]
     Active Substance: ALPRAZOLAM
     Dosage: 1 TABLET, QD, FOR 10 DAYS
  16. AZITHROMYCIN ANHYDROUS. [Concomitant]
     Active Substance: AZITHROMYCIN ANHYDROUS
  17. BACLOFEN. [Concomitant]
     Active Substance: BACLOFEN
     Dosage: 1 TABLET, TID
     Route: 048
  18. GABAPENTIN. [Concomitant]
     Active Substance: GABAPENTIN
     Dosage: 2 CAPSULES, QID, FOR 30 DAYS
     Route: 048
  19. HYDROXYZINE HCL [Concomitant]
     Active Substance: HYDROXYZINE HYDROCHLORIDE
     Dosage: 1 TABLET, QD, IN THE MORNING
     Route: 048
  20. KETOCONAZOLE. [Concomitant]
     Active Substance: KETOCONAZOLE
     Route: 061
  21. VALACYCLOVIR [Concomitant]
     Active Substance: VALACYCLOVIR HYDROCHLORIDE
  22. LEMTRADA [Suspect]
     Active Substance: ALEMTUZUMAB
     Dosage: UNK, UNK
     Route: 041
     Dates: start: 201807
  23. METHYLPREDNISOLONE. [Concomitant]
     Active Substance: METHYLPREDNISOLONE
  24. MONTELUKAST [Concomitant]
     Active Substance: MONTELUKAST SODIUM
  25. PANTOPRAZOLE [Concomitant]
     Active Substance: PANTOPRAZOLE
  26. DOXYCYCLINE HYCLATE. [Concomitant]
     Active Substance: DOXYCYCLINE HYCLATE
  27. ESCITALOPRAM [ESCITALOPRAM OXALATE] [Concomitant]
     Active Substance: ESCITALOPRAM OXALATE
     Dosage: 1 TABLET, QD,FOR 90 DAYS
     Route: 048
  28. PROAIR HFA [Concomitant]
     Active Substance: ALBUTEROL SULFATE
  29. SERTRALINE [Concomitant]
     Active Substance: SERTRALINE HYDROCHLORIDE
     Dosage: 1 TABLET, QD, 30 DAYS
     Route: 048
  30. HYDROCODONE [Concomitant]
     Active Substance: HYDROCODONE
  31. ONDANSETRON [Concomitant]
     Active Substance: ONDANSETRON
  32. PREDNISONE [PREDNISONE ACETATE] [Concomitant]
     Active Substance: PREDNISONE ACETATE

REACTIONS (41)
  - Palpitations [Unknown]
  - Anxiety [Unknown]
  - Weight decreased [Unknown]
  - Nocturia [Unknown]
  - Constipation [Unknown]
  - Gait disturbance [Unknown]
  - Arthralgia [Unknown]
  - Bile duct obstruction [Unknown]
  - Sinus congestion [Unknown]
  - Tinnitus [Unknown]
  - Vomiting [Unknown]
  - Fatigue [Unknown]
  - Night sweats [Unknown]
  - Urine protein/creatinine ratio abnormal [Unknown]
  - Neck pain [Unknown]
  - Depression [Unknown]
  - Headache [Unknown]
  - Temperature intolerance [Unknown]
  - Dyspepsia [Unknown]
  - Thyroid function test abnormal [Unknown]
  - Pollakiuria [Unknown]
  - Myalgia [Unknown]
  - Muscle spasms [Unknown]
  - Back pain [Unknown]
  - Hyperthyroidism [Unknown]
  - Muscular weakness [Unknown]
  - Hyperhidrosis [Unknown]
  - Insomnia [Unknown]
  - Diarrhoea [Unknown]
  - Musculoskeletal stiffness [Unknown]
  - Disturbance in attention [Unknown]
  - Weight increased [Unknown]
  - Pain [Unknown]
  - Restlessness [Unknown]
  - Nausea [Unknown]
  - Stress [Unknown]
  - Micturition urgency [Unknown]
  - Increased tendency to bruise [Unknown]
  - Paraesthesia [Unknown]
  - Abdominal pain [Unknown]
  - Eye pain [Unknown]
